FAERS Safety Report 13944503 (Version 1)
Quarter: 2017Q3

REPORT INFORMATION
  Report Type: Spontaneous
  Country: RU (occurrence: RU)
  Receive Date: 20170907
  Receipt Date: 20170907
  Transmission Date: 20171128
  Serious: Yes (Other)
  Sender: FDA-Public Use
  Company Number: RU-ASTRAZENECA-2017SE90535

PATIENT
  Age: 56 Year
  Sex: Male
  Weight: 83 kg

DRUGS (6)
  1. LIPRIMAR [Concomitant]
     Active Substance: ATORVASTATIN CALCIUM
  2. CONCOR [Concomitant]
     Active Substance: BISOPROLOL FUMARATE
  3. OMES [Concomitant]
  4. BRILINTA [Suspect]
     Active Substance: TICAGRELOR
     Indication: MYOCARDIAL INFARCTION
     Route: 048
     Dates: start: 201606
  5. ACETYLSALICYLIC ACID [Concomitant]
     Active Substance: ASPIRIN
  6. PRESTARIUM [Concomitant]
     Active Substance: PERINDOPRIL

REACTIONS (6)
  - Product use issue [Unknown]
  - Traumatic haemorrhage [Not Recovered/Not Resolved]
  - Bleeding time prolonged [Unknown]
  - Abscess limb [Not Recovered/Not Resolved]
  - Intentional product misuse [Not Recovered/Not Resolved]
  - Off label use [Not Recovered/Not Resolved]

NARRATIVE: CASE EVENT DATE: 201606
